FAERS Safety Report 15497425 (Version 13)
Quarter: 2019Q3

REPORT INFORMATION
  Report Type: Spontaneous
  Country: US (occurrence: US)
  Receive Date: 20181015
  Receipt Date: 20190919
  Transmission Date: 20191004
  Serious: Yes (Hospitalization, Disabling, Other)
  Sender: FDA-Public Use
  Company Number: US-PFIZER INC-2018418661

PATIENT
  Age: 54 Year
  Sex: Male

DRUGS (24)
  1. DILANTIN [Suspect]
     Active Substance: PHENYTOIN
     Dosage: 300 MG, 2X/DAY (ON ALTERNATE DAYS)
     Route: 048
  2. DILANTIN [Suspect]
     Active Substance: PHENYTOIN
     Dosage: 300 MG, 3X/DAY
     Route: 048
     Dates: start: 20160713
  3. DILANTIN [Suspect]
     Active Substance: PHENYTOIN
     Dosage: 300 MG, DAILY
     Dates: start: 20140321
  4. PHENYTOIN. [Suspect]
     Active Substance: PHENYTOIN
     Indication: SEIZURE
     Dosage: UNK
     Dates: start: 2009, end: 2012
  5. DILANTIN-125 [Suspect]
     Active Substance: PHENYTOIN
     Dosage: UNK
  6. DILANTIN [Suspect]
     Active Substance: PHENYTOIN
     Indication: SEIZURE
     Dosage: UNK
     Dates: start: 1964, end: 2009
  7. DILANTIN [Suspect]
     Active Substance: PHENYTOIN
     Dosage: UNK
     Dates: start: 2012, end: 2017
  8. DILANTIN [Suspect]
     Active Substance: PHENYTOIN
     Dosage: 400 MG, DAILY
     Route: 048
  9. LOVENOX [Concomitant]
     Active Substance: ENOXAPARIN SODIUM
     Dosage: UNK, 40MG/0.4 ML FOR 24 HOURS
     Route: 058
     Dates: start: 20160713
  10. PROTONIX [Concomitant]
     Active Substance: PANTOPRAZOLE SODIUM
     Dosage: 40 MG, DAILY
     Route: 048
     Dates: start: 20160713
  11. PHENOBARBITAL. [Concomitant]
     Active Substance: PHENOBARBITAL
     Dosage: UNK
     Dates: start: 1978, end: 1979
  12. KEPPRA [Concomitant]
     Active Substance: LEVETIRACETAM
     Dosage: UNK
     Dates: start: 2007, end: 2009
  13. DILANTIN [Suspect]
     Active Substance: PHENYTOIN
     Dosage: 100 MG, UNK
     Dates: start: 20140122
  14. LAMICTAL [Concomitant]
     Active Substance: LAMOTRIGINE
     Dosage: UNK
     Dates: start: 2007, end: 2009
  15. TYLENOL [Concomitant]
     Active Substance: ACETAMINOPHEN
     Indication: PAIN
     Dosage: 1000 MG, 2X/DAY
     Route: 048
     Dates: start: 20160713
  16. DILANTIN [Suspect]
     Active Substance: PHENYTOIN
     Dosage: 200 MG, 2X/DAY (ON ALTERNATE DAYS)
     Route: 048
  17. DILANTIN [Suspect]
     Active Substance: PHENYTOIN
     Dosage: 500 MG, DAILY (2 CAPSULES IN MORNING AND 3 CAPSULES AT BEDTIME)
     Dates: start: 20120418
  18. VALIUM [Concomitant]
     Active Substance: DIAZEPAM
     Dosage: UNK
     Dates: start: 201701
  19. TEGRETOL [Concomitant]
     Active Substance: CARBAMAZEPINE
     Dosage: UNK
  20. OXCARBAZEPINE. [Concomitant]
     Active Substance: OXCARBAZEPINE
     Dosage: 150 MG, UNK
  21. ATIVAN [Concomitant]
     Active Substance: LORAZEPAM
     Indication: SEIZURE
     Dosage: UNK, 2MG/0.5 ML, EVERY 4 HOURS AS NEEDED
     Route: 042
     Dates: start: 20160713
  22. TRILEPTAL [Concomitant]
     Active Substance: OXCARBAZEPINE
     Dosage: UNK
     Dates: start: 201701
  23. DEPAKOTE [Concomitant]
     Active Substance: DIVALPROEX SODIUM
     Dosage: UNK
  24. KLONOPIN [Concomitant]
     Active Substance: CLONAZEPAM
     Dosage: UNK

REACTIONS (36)
  - Facial bones fracture [Unknown]
  - Tremor [Not Recovered/Not Resolved]
  - Fine motor skill dysfunction [Not Recovered/Not Resolved]
  - Ischaemia [Unknown]
  - Epistaxis [Unknown]
  - Abnormal behaviour [Unknown]
  - Intervertebral disc annular tear [Unknown]
  - Neuropathy peripheral [Not Recovered/Not Resolved]
  - Toxicity to various agents [Unknown]
  - Spinal osteoarthritis [Unknown]
  - Coordination abnormal [Not Recovered/Not Resolved]
  - Dizziness [Not Recovered/Not Resolved]
  - Psychiatric symptom [Not Recovered/Not Resolved]
  - Gait disturbance [Unknown]
  - Sleep apnoea syndrome [Unknown]
  - Cerebellar atrophy [Not Recovered/Not Resolved]
  - Confusional state [Unknown]
  - Thinking abnormal [Unknown]
  - Pain [Unknown]
  - Incontinence [Not Recovered/Not Resolved]
  - Deafness [Not Recovered/Not Resolved]
  - Fall [Unknown]
  - Amnesia [Not Recovered/Not Resolved]
  - Asthenia [Not Recovered/Not Resolved]
  - Mental impairment [Unknown]
  - Ataxia [Not Recovered/Not Resolved]
  - Balance disorder [Not Recovered/Not Resolved]
  - Facial asymmetry [Not Recovered/Not Resolved]
  - Disturbance in attention [Not Recovered/Not Resolved]
  - Mental status changes [Unknown]
  - Blindness [Not Recovered/Not Resolved]
  - Frustration tolerance decreased [Not Recovered/Not Resolved]
  - Nose deformity [Unknown]
  - Mania [Unknown]
  - Speech disorder [Not Recovered/Not Resolved]
  - Gingivitis [Not Recovered/Not Resolved]

NARRATIVE: CASE EVENT DATE: 20140121
